FAERS Safety Report 11753102 (Version 1)
Quarter: 2015Q4

REPORT INFORMATION
  Report Type: Report from Study
  Country: US (occurrence: US)
  Receive Date: 20151119
  Receipt Date: 20151119
  Transmission Date: 20160304
  Serious: Yes (Hospitalization)
  Sender: FDA-Public Use
  Company Number: US-ROCHE-1662525

PATIENT
  Age: 67 Year
  Sex: Female

DRUGS (5)
  1. BEVACIZUMAB [Suspect]
     Active Substance: BEVACIZUMAB
     Indication: HEAD AND NECK CANCER
     Dosage: OVER 30-90 MINUTES, DAY 1
     Route: 042
     Dates: start: 20090402
  2. CISPLATIN. [Suspect]
     Active Substance: CISPLATIN
     Indication: HEAD AND NECK CANCER
     Dosage: OVER 1-2 HOURS, DAY 1
     Route: 042
     Dates: start: 20090402
  3. DOCETAXEL. [Suspect]
     Active Substance: DOCETAXEL
     Indication: HEAD AND NECK CANCER
     Dosage: OVER 1 HOUR, DAY 1
     Route: 042
     Dates: start: 20090402
  4. BISOPROLOL FUMARATE AND HYDROCHLOROTHIAZIDE [Suspect]
     Active Substance: BISOPROLOL FUMARATE\HYDROCHLOROTHIAZIDE
     Indication: HEAD AND NECK CANCER
     Route: 065
  5. HYDROCHLOROTHIAZIDE. [Suspect]
     Active Substance: HYDROCHLOROTHIAZIDE
     Indication: HEAD AND NECK CANCER
     Route: 065

REACTIONS (5)
  - Hypotension [Unknown]
  - Atrial fibrillation [Unknown]
  - Dehydration [Unknown]
  - White blood cell count decreased [Unknown]
  - Dysphagia [Unknown]

NARRATIVE: CASE EVENT DATE: 20090407
